FAERS Safety Report 15458799 (Version 1)
Quarter: 2018Q4

REPORT INFORMATION
  Report Type: Spontaneous
  Country: US (occurrence: US)
  Receive Date: 20181003
  Receipt Date: 20181003
  Transmission Date: 20190204
  Serious: No
  Sender: FDA-Public Use
  Company Number: US-GLAXOSMITHKLINE-US2018174925

PATIENT
  Age: 68 Year
  Sex: Male

DRUGS (2)
  1. ZITHROMAX [Suspect]
     Active Substance: AZITHROMYCIN DIHYDRATE
     Indication: BRONCHITIS
     Dosage: UNK UNK, U
  2. ADVAIR DISKUS [Suspect]
     Active Substance: FLUTICASONE PROPIONATE\SALMETEROL XINAFOATE
     Indication: BRONCHITIS
     Dosage: 1 PUFF(S), BID
     Route: 055
     Dates: start: 201804

REACTIONS (11)
  - Dysgeusia [Recovering/Resolving]
  - Ageusia [Recovering/Resolving]
  - Weight decreased [Unknown]
  - Product use in unapproved indication [Unknown]
  - Sneezing [Recovering/Resolving]
  - Cough [Recovering/Resolving]
  - Drug ineffective [Unknown]
  - Nausea [Recovering/Resolving]
  - Parosmia [Recovering/Resolving]
  - Off label use [Unknown]
  - Throat irritation [Recovering/Resolving]

NARRATIVE: CASE EVENT DATE: 201804
